FAERS Safety Report 15599238 (Version 2)
Quarter: 2018Q4

REPORT INFORMATION
  Report Type: Spontaneous
  Country: NL (occurrence: NL)
  Receive Date: 20181108
  Receipt Date: 20181116
  Transmission Date: 20190205
  Serious: Yes (Hospitalization)
  Sender: FDA-Public Use
  Company Number: NL-TEVA-2018-NL-973434

PATIENT
  Age: 72 Year
  Sex: Female
  Weight: 68 kg

DRUGS (11)
  1. FOLIUMZUUR 0.45 MG [Concomitant]
  2. AMITRIPTYLINE TABLET, 25 MG (MILLIGRAM) [Interacting]
     Active Substance: AMITRIPTYLINE HYDROCHLORIDE
     Indication: PRODUCT USED FOR UNKNOWN INDICATION
     Dosage: 3DD
     Route: 065
     Dates: start: 2008, end: 20181008
  3. ACETYLSALICYLZUUR 80 MG [Concomitant]
     Dosage: 80 MILLIGRAM DAILY;
  4. FENTANYL PLEISTER, 12 ?G (MICROGRAM) PER UUR [Suspect]
     Active Substance: FENTANYL
     Indication: PAIN
     Dosage: 1X PER 3 DAGEN
     Route: 065
     Dates: start: 2017, end: 201809
  5. CYANOOBALAMINE 1000 [Concomitant]
  6. NITROFURANTOINE 50 MG [Concomitant]
     Dosage: 100 MILLIGRAM DAILY; 1DD2 AN
  7. DIAZEPAM TABLET, 5 MG (MILLIGRAM) [Interacting]
     Active Substance: DIAZEPAM
     Indication: ANXIETY
     Dosage: 7 MILLIGRAM DAILY; 1X PER DAG 7MG
     Route: 065
     Dates: start: 2008
  8. CEFTRIAXON [Concomitant]
     Active Substance: CEFTRIAXONE
     Dates: start: 20181001, end: 20181005
  9. OXYCONTIN [Interacting]
     Active Substance: OXYCODONE HYDROCHLORIDE
     Indication: PAIN
     Dosage: 3DD
     Route: 065
     Dates: start: 2008
  10. PARACETAMOL 1000 MG [Concomitant]
     Dosage: 1000 MILLIGRAM DAILY; 3DD
     Route: 065
  11. OMEPRAZOL 40 [Concomitant]
     Dosage: 40 MILLIGRAM DAILY; 1DD

REACTIONS (3)
  - Delirium [Recovering/Resolving]
  - Drug interaction [Recovering/Resolving]
  - Normocytic anaemia [Not Recovered/Not Resolved]

NARRATIVE: CASE EVENT DATE: 20170918
